FAERS Safety Report 9094930 (Version 3)
Quarter: 2013Q3

REPORT INFORMATION
  Report Type: Report from Study
  Country: JP (occurrence: JP)
  Receive Date: 20130219
  Receipt Date: 20130805
  Transmission Date: 20140515
  Serious: Yes (Death)
  Sender: FDA-Public Use
  Company Number: JP-ABBOTT-13P-087-1051723-00

PATIENT
  Age: 36 Year
  Sex: Male

DRUGS (2)
  1. LIPIDIL [Suspect]
     Indication: TYPE IIB HYPERLIPIDAEMIA
     Route: 048
  2. LIVALO [Concomitant]
     Indication: PRODUCT USED FOR UNKNOWN INDICATION
     Dates: end: 20120521

REACTIONS (1)
  - Arrhythmia [Fatal]
